FAERS Safety Report 14981494 (Version 1)
Quarter: 2018Q2

REPORT INFORMATION
  Report Type: Spontaneous
  Country: US (occurrence: US)
  Receive Date: 20180607
  Receipt Date: 20180607
  Transmission Date: 20180711
  Serious: Yes (Other)
  Sender: FDA-Public Use
  Company Number: US-ASTRAZENECA-2018SE72777

PATIENT
  Age: 836 Month
  Sex: Female
  Weight: 99.8 kg

DRUGS (18)
  1. TRAMADOL. [Concomitant]
     Active Substance: TRAMADOL
     Indication: PAIN
     Dosage: AS REQUIRED
     Route: 048
     Dates: start: 2016
  2. CRESTOR GENERIC [Suspect]
     Active Substance: ROSUVASTATIN CALCIUM
     Indication: LOW DENSITY LIPOPROTEIN INCREASED
     Dosage: 5 MG DAILY, UNKNOWN, GENERIC.
     Route: 048
     Dates: start: 201802
  3. CRESTOR GENERIC [Suspect]
     Active Substance: ROSUVASTATIN CALCIUM
     Indication: BLOOD CHOLESTEROL INCREASED
     Dosage: 10 MG DAILY, UNKNOWN, GENERIC.
     Route: 048
     Dates: start: 201803
  4. CRESTOR GENERIC [Suspect]
     Active Substance: ROSUVASTATIN CALCIUM
     Indication: LOW DENSITY LIPOPROTEIN INCREASED
     Dosage: 10 MG DAILY, UNKNOWN, GENERIC.
     Route: 048
     Dates: start: 201803
  5. CRESTOR GENERIC [Suspect]
     Active Substance: ROSUVASTATIN CALCIUM
     Indication: LOW DENSITY LIPOPROTEIN INCREASED
     Route: 048
  6. CLONAZEPAM. [Concomitant]
     Active Substance: CLONAZEPAM
     Indication: HYPERVENTILATION
     Route: 048
  7. ESCITALOPRAM [Concomitant]
     Active Substance: ESCITALOPRAM OXALATE
  8. CRESTOR GENERIC [Suspect]
     Active Substance: ROSUVASTATIN CALCIUM
     Indication: HEART RATE DECREASED
     Dosage: 5 MG DAILY, UNKNOWN, GENERIC.
     Route: 048
     Dates: start: 201802
  9. ESCITALOPRAM [Concomitant]
     Active Substance: ESCITALOPRAM OXALATE
     Indication: ANXIETY
     Route: 048
  10. MONTELUKAST SODIUM. [Concomitant]
     Active Substance: MONTELUKAST SODIUM
     Indication: ASTHMA EXERCISE INDUCED
     Route: 048
     Dates: start: 20170726
  11. CRESTOR GENERIC [Suspect]
     Active Substance: ROSUVASTATIN CALCIUM
     Indication: BLOOD CHOLESTEROL INCREASED
     Dosage: 5 MG DAILY, UNKNOWN, GENERIC.
     Route: 048
     Dates: start: 201802
  12. CRESTOR GENERIC [Suspect]
     Active Substance: ROSUVASTATIN CALCIUM
     Indication: HEART RATE DECREASED
     Route: 048
  13. SYNTHROID [Concomitant]
     Active Substance: LEVOTHYROXINE SODIUM
     Indication: HYPOTHYROIDISM
     Route: 048
     Dates: start: 1980
  14. ASPIRIN. [Concomitant]
     Active Substance: ASPIRIN
     Indication: HEADACHE
     Dosage: VARIES FROM 81 MG DAILY TO 365 MG DAILY
     Route: 048
  15. CLONAZEPAM. [Concomitant]
     Active Substance: CLONAZEPAM
  16. CRESTOR GENERIC [Suspect]
     Active Substance: ROSUVASTATIN CALCIUM
     Indication: BLOOD CHOLESTEROL INCREASED
     Route: 048
  17. METOPROLOL TARTRATE. [Suspect]
     Active Substance: METOPROLOL TARTRATE
     Indication: HEART RATE DECREASED
     Route: 048
     Dates: start: 2000
  18. CRESTOR GENERIC [Suspect]
     Active Substance: ROSUVASTATIN CALCIUM
     Indication: HEART RATE DECREASED
     Dosage: 10 MG DAILY, UNKNOWN, GENERIC.
     Route: 048
     Dates: start: 201803

REACTIONS (8)
  - Blood calcium abnormal [Unknown]
  - High density lipoprotein decreased [Unknown]
  - Coronary artery occlusion [Unknown]
  - Weight decreased [Not Recovered/Not Resolved]
  - Blood triglycerides increased [Unknown]
  - C-reactive protein increased [Unknown]
  - Cardiac disorder [Unknown]
  - Blood folate decreased [Unknown]

NARRATIVE: CASE EVENT DATE: 201801
